FAERS Safety Report 19287919 (Version 3)
Quarter: 2021Q2

REPORT INFORMATION
  Report Type: Report from Study
  Country: BR (occurrence: BR)
  Receive Date: 20210521
  Receipt Date: 20210603
  Transmission Date: 20210717
  Serious: Yes (Death, Hospitalization)
  Sender: FDA-Public Use
  Company Number: BR-CELGENEUS-BRA-20210503461

PATIENT
  Age: 63 Year
  Sex: Female
  Weight: 83.2 kg

DRUGS (19)
  1. PEMBROLIZUMAB. [Suspect]
     Active Substance: PEMBROLIZUMAB
     Dosage: 200 MILLIGRAM
     Route: 042
     Dates: start: 20210423, end: 20210423
  2. CARBOPLATIN. [Suspect]
     Active Substance: CARBOPLATIN
     Dosage: TITRATED TO AN AREA UNDER THE CURVE (AUC) OF 6 MG/ML/MIN, Q3W, ON DAY 1
     Route: 042
     Dates: start: 20210423, end: 20210423
  3. VASOPRESSIN. [Concomitant]
     Active Substance: VASOPRESSIN
     Indication: HYPOTENSION
     Route: 065
     Dates: start: 20210506
  4. GLYBURIDE. [Concomitant]
     Active Substance: GLYBURIDE
     Indication: DIABETES MELLITUS
     Dosage: 20 MILLIGRAM
     Route: 048
     Dates: start: 201912
  5. AMOXICILLIN/CLAVULANATE POTASSIUM [Concomitant]
     Active Substance: AMOXICILLIN\CLAVULANATE POTASSIUM
     Indication: UPPER RESPIRATORY TRACT INFECTION
     Dosage: 1500 MILLIGRAM
     Route: 048
     Dates: start: 20210416, end: 20210420
  6. PEMBROLIZUMAB. [Suspect]
     Active Substance: PEMBROLIZUMAB
     Indication: NON-SMALL CELL LUNG CANCER STAGE IV
     Dosage: 200 MILLIGRAM
     Route: 042
     Dates: start: 20210108, end: 20210205
  7. PROPRANOLOL [Concomitant]
     Active Substance: PROPRANOLOL HYDROCHLORIDE
     Indication: HYPERTENSION
     Dosage: 120 MILLIGRAM
     Route: 048
     Dates: start: 200012
  8. METOCLOPRAMIDE. [Concomitant]
     Active Substance: METOCLOPRAMIDE
     Indication: NAUSEA
     Dosage: 30 MILLIGRAM
     Route: 048
     Dates: start: 20210205
  9. ABRAXANE [Suspect]
     Active Substance: PACLITAXEL
     Indication: NON-SMALL CELL LUNG CANCER STAGE IV
     Dosage: 100 MILLIGRAM/SQ. METER
     Route: 042
     Dates: start: 20210108, end: 20210305
  10. CARBOPLATIN. [Suspect]
     Active Substance: CARBOPLATIN
     Indication: NON-SMALL CELL LUNG CANCER STAGE IV
     Dosage: TITRATED TO AN AREA UNDER THE CURVE (AUC) OF 6 MG/ML/MIN, Q3W, ON DAY 1
     Route: 042
     Dates: start: 20210108, end: 20210205
  11. LOSARTAN. [Concomitant]
     Active Substance: LOSARTAN
     Indication: HYPERTENSION
     Dosage: 100 MILLIGRAM
     Route: 048
     Dates: start: 200012
  12. DRAMIN [Concomitant]
     Active Substance: DIMENHYDRINATE
     Indication: NAUSEA
     Dosage: 150 MILLIGRAM
     Route: 048
     Dates: start: 20210114
  13. HYDROCHLOROTHIAZIDE. [Concomitant]
     Active Substance: HYDROCHLOROTHIAZIDE
     Indication: HYPERTENSION
     Dosage: 25 MILLIGRAM
     Route: 048
     Dates: start: 200012
  14. ASPIRIN. [Concomitant]
     Active Substance: ASPIRIN
     Indication: PROPHYLAXIS
     Dosage: 100 MILLIGRAM
     Route: 048
     Dates: start: 200012
  15. NOREPINEPHRINE. [Concomitant]
     Active Substance: NOREPINEPHRINE
     Indication: HYPOTENSION
     Route: 065
     Dates: start: 20210506
  16. ABRAXANE [Suspect]
     Active Substance: PACLITAXEL
     Dosage: 100 MILLIGRAM/SQ. METER
     Route: 042
     Dates: start: 20210423, end: 20210430
  17. SIMVASTATIN. [Concomitant]
     Active Substance: SIMVASTATIN
     Indication: DYSLIPIDAEMIA
     Dosage: 40 MILLIGRAM
     Route: 048
     Dates: start: 200012
  18. ACETAMINOPHEN. [Concomitant]
     Active Substance: ACETAMINOPHEN
     Indication: PAIN IN EXTREMITY
     Dosage: 2250 MILLIGRAM
     Route: 048
     Dates: start: 20210205
  19. ONDANSETRON [Concomitant]
     Active Substance: ONDANSETRON
     Indication: NAUSEA
     Dosage: 24 MILLIGRAM
     Route: 048
     Dates: start: 20210205

REACTIONS (3)
  - Renal failure [Recovering/Resolving]
  - Septic shock [Fatal]
  - Respiratory failure [Recovering/Resolving]

NARRATIVE: CASE EVENT DATE: 20210504
